FAERS Safety Report 7279449-8 (Version None)
Quarter: 2011Q1

REPORT INFORMATION
  Report Type: 
  Country: None (occurrence: None)
  Receive Date: 20110208
  Receipt Date: 20110131
  Transmission Date: 20110831
  Serious: No
  Sender: FDA-Public Use
  Company Number: US-BIOGENIDEC-2011BI004146

PATIENT
  Sex: Female

DRUGS (4)
  1. AVONEX [Suspect]
     Route: 030
  2. EFFEXOR [Concomitant]
  3. NEURONTIN [Concomitant]
  4. AVONEX [Suspect]
     Indication: MULTIPLE SCLEROSIS
     Route: 030
     Dates: start: 20000101

REACTIONS (5)
  - TOOTH DISORDER [None]
  - VOMITING [None]
  - APHAGIA [None]
  - EMOTIONAL DISORDER [None]
  - INSOMNIA [None]
